FAERS Safety Report 5495509-6 (Version None)
Quarter: 2007Q4

REPORT INFORMATION
  Report Type: 
  Country: None (occurrence: None)
  Receive Date: 20071023
  Receipt Date: 20071008
  Transmission Date: 20080405
  Serious: Yes (Hospitalization)
  Sender: FDA-Public Use
  Company Number: DSA_30743_2007

PATIENT
  Age: 85 Year
  Sex: Male

DRUGS (5)
  1. ENALAPRIL MALEATE [Suspect]
     Indication: HYPERTENSION
     Dosage: 20 MG QD ORAL
     Route: 048
     Dates: end: 20070214
  2. ALTIZIDE W/SPIRONOLACTONE(ALTHIAZIDE/SPIRONOLACTONE) [Suspect]
     Indication: HYPERTENSION
     Dosage: 15/25 MG QD ORAL
     Route: 048
     Dates: end: 20070214
  3. AMLODIPINE BESYLATE [Concomitant]
  4. OXAZEPAM [Concomitant]
  5. SERTRALINE HYDROCHLORIDE [Concomitant]

REACTIONS (5)
  - BLOOD PRESSURE INCREASED [None]
  - BRADYCARDIA [None]
  - DEHYDRATION [None]
  - HYPERKALAEMIA [None]
  - RENAL FAILURE [None]
